FAERS Safety Report 6100994-2 (Version None)
Quarter: 2009Q1

REPORT INFORMATION
  Report Type: 
  Country: None (occurrence: None)
  Receive Date: 20090304
  Receipt Date: 20090220
  Transmission Date: 20090719
  Serious: Yes (Hospitalization, Other)
  Sender: FDA-Public Use
  Company Number: US-ROCHE-521783

PATIENT
  Sex: Female
  Weight: 56.7 kg

DRUGS (1)
  1. ACCUTANE [Suspect]
     Indication: ACNE
     Route: 048
     Dates: start: 19950803, end: 19960102

REACTIONS (8)
  - ALCOHOL ABUSE [None]
  - ALCOHOL POISONING [None]
  - ANXIETY [None]
  - COLITIS ULCERATIVE [None]
  - HYPERTENSION [None]
  - INFLAMMATORY BOWEL DISEASE [None]
  - MAJOR DEPRESSION [None]
  - SUICIDAL IDEATION [None]
